FAERS Safety Report 7978990 (Version 4)
Quarter: 2012Q4

REPORT INFORMATION
  Report Type: Report from Study
  Country: US (occurrence: US)
  Receive Date: 20110607
  Receipt Date: 20121115
  Transmission Date: 20130627
  Serious: Yes (Other)
  Sender: FDA-Public Use
  Company Number: US-UCBSA-034003

PATIENT
  Age: 9 Day
  Sex: Male
  Weight: 2.95 kg

DRUGS (11)
  1. KEPPRA XR [Suspect]
     Indication: EPILEPSY
     Route: 064
     Dates: end: 201003
  2. KEPPRA XR [Suspect]
     Indication: EPILEPSY
     Route: 064
     Dates: start: 201003
  3. KEPPRA XR [Suspect]
     Indication: EPILEPSY
     Route: 064
     Dates: start: 20100426, end: 2010
  4. TOPIRAMATE [Concomitant]
     Indication: MIGRAINE
     Route: 064
  5. AMBIEN [Concomitant]
     Dosage: QHS
     Route: 064
  6. BIOTIN [Concomitant]
     Indication: VITAMIN SUPPLEMENTATION
     Route: 064
     Dates: start: 200911, end: 201003
  7. PRENATAL VITAMINS [Concomitant]
     Indication: PREGNANCY
     Route: 064
     Dates: start: 201002, end: 2010
  8. MULTIVITAMIN [Concomitant]
     Route: 064
  9. ROTA VACCINE [Concomitant]
     Route: 048
     Dates: start: 20101013
  10. ROTA VACCINE [Concomitant]
     Route: 048
     Dates: start: 20110214
  11. ROTA VACCINE [Concomitant]
     Route: 048
     Dates: start: 20110418

REACTIONS (11)
  - Sickle cell trait [Unknown]
  - Lactose intolerance [Unknown]
  - Urachal abnormality [Unknown]
  - Upper respiratory tract infection [Recovering/Resolving]
  - Dermatitis [Recovered/Resolved]
  - Rash [Unknown]
  - Gastrooesophageal reflux disease [Unknown]
  - Otitis media [Unknown]
  - Acne [Unknown]
  - Foetal exposure during pregnancy [Recovered/Resolved]
  - Adverse event [Unknown]
